FAERS Safety Report 6570326-4 (Version None)
Quarter: 2010Q1

REPORT INFORMATION
  Report Type: 
  Country: None (occurrence: None)
  Receive Date: 20100204
  Receipt Date: 20100104
  Transmission Date: 20100710
  Serious: No
  Sender: FDA-Public Use
  Company Number: US-BAYER-201010405NA

PATIENT
  Sex: Male

DRUGS (4)
  1. AVELOX [Suspect]
     Indication: DRUG USE FOR UNKNOWN INDICATION
     Dates: end: 20091204
  2. LEXAPRO [Concomitant]
  3. LORAZEPAM [Concomitant]
  4. ATACAND [Concomitant]

REACTIONS (7)
  - DIZZINESS [None]
  - FEELING HOT [None]
  - HEADACHE [None]
  - MUSCULOSKELETAL PAIN [None]
  - NERVOUSNESS [None]
  - NEURALGIA [None]
  - VISION BLURRED [None]
